FAERS Safety Report 25759401 (Version 2)
Quarter: 2025Q4

REPORT INFORMATION
  Report Type: Spontaneous
  Country: DZ (occurrence: DZ)
  Receive Date: 20250904
  Receipt Date: 20251010
  Transmission Date: 20260117
  Serious: Yes (Hospitalization, Other)
  Sender: ROCHE
  Company Number: DZ-002147023-NVSC2025DZ120754

PATIENT
  Age: 37 Year
  Sex: Female

DRUGS (2)
  1. XOLAIR [Suspect]
     Active Substance: OMALIZUMAB
     Indication: Chronic spontaneous urticaria
     Dosage: 150 MG, QMO
     Route: 058
     Dates: start: 20250610
  2. XOLAIR [Suspect]
     Active Substance: OMALIZUMAB
     Dosage: 150 MG, QMO
     Route: 058
     Dates: end: 20250720

REACTIONS (6)
  - Anaphylactic reaction [Recovered/Resolved]
  - Muscle spasms [Recovered/Resolved]
  - Pruritus [Recovered/Resolved]
  - Oedema [Recovered/Resolved]
  - Rash [Recovered/Resolved]
  - Mouth swelling [Recovered/Resolved]

NARRATIVE: CASE EVENT DATE: 20250725
